FAERS Safety Report 25320348 (Version 1)
Quarter: 2025Q2

REPORT INFORMATION
  Report Type: Spontaneous
  Country: SE (occurrence: SE)
  Receive Date: 20250515
  Receipt Date: 20250515
  Transmission Date: 20250716
  Serious: Yes (Disabling)
  Sender: SANDOZ
  Company Number: None

PATIENT
  Age: 25 Year
  Sex: Female
  Weight: 58 kg

DRUGS (2)
  1. HYRIMOZ [Suspect]
     Active Substance: ADALIMUMAB-ADAZ
     Indication: Psoriasis
     Dosage: 40 MG, Q2W, SOLUTION FOR INJECTION IN PRE-FILLED PEN
     Route: 065
     Dates: start: 202305, end: 2024
  2. EUTHYROX [Concomitant]
     Active Substance: LEVOTHYROXINE SODIUM
     Indication: Product used for unknown indication
     Route: 065

REACTIONS (8)
  - Vascular rupture [Recovered/Resolved with Sequelae]
  - Cellulite [Not Recovered/Not Resolved]
  - Gingival recession [Not Recovered/Not Resolved]
  - Heart rate increased [Not Recovered/Not Resolved]
  - Night sweats [Recovering/Resolving]
  - Dyspnoea [Not Recovered/Not Resolved]
  - Fatigue [Not Recovered/Not Resolved]
  - Impetigo [Recovered/Resolved]
